FAERS Safety Report 4975990-9 (Version None)
Quarter: 2006Q2

REPORT INFORMATION
  Report Type: 
  Country: None (occurrence: None)
  Receive Date: 20060418
  Receipt Date: 20060410
  Transmission Date: 20061013
  Serious: Yes (Hospitalization, Other)
  Sender: FDA-Public Use
  Company Number: US-MERCK-0604USA01932

PATIENT
  Age: 49 Year
  Sex: Male
  Weight: 93 kg

DRUGS (8)
  1. VIOXX [Suspect]
     Indication: ARTHRALGIA
     Route: 048
     Dates: start: 20020901, end: 20040201
  2. VIOXX [Suspect]
     Route: 048
     Dates: start: 20020901, end: 20040201
  3. VIOXX [Suspect]
     Route: 048
     Dates: start: 20020901, end: 20040201
  4. VIOXX [Suspect]
     Indication: OSTEOARTHRITIS
     Route: 048
     Dates: start: 20020901, end: 20040201
  5. VIOXX [Suspect]
     Route: 048
     Dates: start: 20020901, end: 20040201
  6. VIOXX [Suspect]
     Route: 048
     Dates: start: 20020901, end: 20040201
  7. FLEXERIL [Concomitant]
     Route: 048
  8. LORTAB [Suspect]
     Route: 065

REACTIONS (7)
  - CEREBROVASCULAR ACCIDENT [None]
  - CHEST PAIN [None]
  - HYPERTENSION [None]
  - MYOCARDIAL INFARCTION [None]
  - PRESCRIBED OVERDOSE [None]
  - ROAD TRAFFIC ACCIDENT [None]
  - STOMACH DISCOMFORT [None]
